FAERS Safety Report 16371652 (Version 7)
Quarter: 2021Q1

REPORT INFORMATION
  Report Type: Spontaneous
  Country: IN (occurrence: IN)
  Receive Date: 20190530
  Receipt Date: 20210218
  Transmission Date: 20210419
  Serious: Yes (Other)
  Sender: FDA-Public Use
  Company Number: IN-PFIZER INC-2019105849

PATIENT
  Age: 62 Year
  Sex: Female

DRUGS (9)
  1. LETROZ [Concomitant]
     Dosage: 2.5 MG, 1X/DAY (180DAYS)
     Route: 048
     Dates: start: 201807
  2. REFRESH TEARS LUBRICANT [Concomitant]
     Active Substance: CARBOXYMETHYLCELLULOSE SODIUM
     Dosage: UNK (AS INSTRUCTED (180 DAYS))
     Route: 047
  3. PALBACE [Suspect]
     Active Substance: PALBOCICLIB
     Indication: BREAST CANCER METASTATIC
     Dosage: 125 MG, CYCLIC (ONCE IN A DAY 21 DAYS 7 DAYS OFF ORAL (180 DAYS))
     Route: 048
     Dates: start: 20180704
  4. ZOBONE [Concomitant]
     Dosage: UNK
     Dates: start: 201807, end: 201903
  5. EVION [Concomitant]
     Active Substance: .ALPHA.-TOCOPHEROL ACETATE
     Dosage: 2X/DAY (30 DAYS ON, 30 DAYS OFF, 180 DAYS)
     Route: 048
  6. THYRONORM [Concomitant]
     Active Substance: LEVOTHYROXINE
     Dosage: 125 UG, 1X/DAY
  7. BECOSULES?Z [Concomitant]
     Dosage: 1X/DAY (1X20, 180 DAYS)
     Route: 048
  8. DEPURA [Concomitant]
     Active Substance: CHOLECALCIFEROL
     Dosage: UNK (ONCE EVERY 2 WEEKS (60))
     Route: 048
  9. SHELCAL [Concomitant]
     Active Substance: CALCIUM CARBONATE\CHOLECALCIFEROL
     Dosage: 2X/DAY TWICE IN A DAY ORAL (180 DAYS
     Route: 048

REACTIONS (6)
  - Pain [Unknown]
  - Neoplasm progression [Unknown]
  - White blood cell count decreased [Unknown]
  - Osteonecrosis of jaw [Unknown]
  - Multiple sclerosis [Unknown]
  - Oropharyngeal discomfort [Unknown]

NARRATIVE: CASE EVENT DATE: 20180919
